FAERS Safety Report 17351208 (Version 4)
Quarter: 2020Q3

REPORT INFORMATION
  Report Type: Spontaneous
  Country: US (occurrence: US)
  Receive Date: 20200130
  Receipt Date: 20200707
  Transmission Date: 20201102
  Serious: Yes (Hospitalization, Other)
  Sender: FDA-Public Use
  Company Number: US-JNJFOC-20200140266

PATIENT
  Age: 80 Year
  Sex: Male

DRUGS (13)
  1. SODIUM BICARBONATE. [Concomitant]
     Active Substance: SODIUM BICARBONATE
  2. PREDNISONE. [Concomitant]
     Active Substance: PREDNISONE
     Dates: start: 20191210
  3. LOPRESSOR [Concomitant]
     Active Substance: METOPROLOL TARTRATE
     Indication: HYPERTENSION
  4. MAGNESIUM OXIDE. [Concomitant]
     Active Substance: MAGNESIUM OXIDE
  5. ESTRACE [Concomitant]
     Active Substance: ESTRADIOL
  6. VITAMIN D3 [Concomitant]
     Active Substance: CHOLECALCIFEROL
  7. EFFEXOR [Concomitant]
     Active Substance: VENLAFAXINE HYDROCHLORIDE
     Indication: ANXIETY
  8. ULORIC [Concomitant]
     Active Substance: FEBUXOSTAT
     Indication: GOUT
  9. ZYRTEC [Concomitant]
     Active Substance: CETIRIZINE HYDROCHLORIDE
  10. CALCIUM CITRATE [Concomitant]
     Active Substance: CALCIUM CITRATE
     Indication: CALCIUM DEFICIENCY
     Dates: start: 20191019
  11. ACETYLSALICYLIC ACID [Concomitant]
     Active Substance: ASPIRIN
     Indication: CARDIAC DISORDER
  12. ZYTIGA [Suspect]
     Active Substance: ABIRATERONE ACETATE
     Indication: PROSTATE CANCER
     Route: 048
     Dates: start: 20191012, end: 20200324
  13. CALCITRIOL. [Concomitant]
     Active Substance: CALCITRIOL

REACTIONS (10)
  - Hernia repair [Unknown]
  - Rash [Unknown]
  - Exfoliative rash [Recovered/Resolved]
  - Stomatitis [Unknown]
  - Pyrexia [Unknown]
  - Tremor [Recovered/Resolved]
  - Mental disorder [Unknown]
  - Decreased appetite [Unknown]
  - Weight decreased [Unknown]
  - Pruritus [Recovered/Resolved]

NARRATIVE: CASE EVENT DATE: 20200116
